FAERS Safety Report 18601401 (Version 1)
Quarter: 2020Q4

REPORT INFORMATION
  Report Type: Report from Study
  Country: TH (occurrence: TH)
  Receive Date: 20201210
  Receipt Date: 20201210
  Transmission Date: 20210114
  Serious: Yes (Hospitalization)
  Sender: FDA-Public Use
  Company Number: TH-SEAGEN-2020SGN05480

PATIENT
  Sex: Male

DRUGS (1)
  1. BRENTUXIMAB VEDOTIN-MPI [Suspect]
     Active Substance: BRENTUXIMAB VEDOTIN
     Indication: HODGKIN^S DISEASE
     Dosage: 100 MG, Q3WEEKS
     Route: 042
     Dates: start: 20201112

REACTIONS (3)
  - Vomiting [Unknown]
  - Diarrhoea [Unknown]
  - White blood cell count decreased [Unknown]
